FAERS Safety Report 6371613-5 (Version None)
Quarter: 2009Q3

REPORT INFORMATION
  Report Type: 
  Country: None (occurrence: None)
  Receive Date: 20090923
  Receipt Date: 20090413
  Transmission Date: 20100115
  Serious: Yes (Other)
  Sender: FDA-Public Use
  Company Number: US-ASTRAZENECA-2008UW04858

PATIENT
  Age: 88 Year
  Sex: Female
  Weight: 56.7 kg

DRUGS (5)
  1. SEROQUEL [Suspect]
     Indication: SLEEP DISORDER
     Dosage: 50 TO 300 MG
     Route: 048
     Dates: start: 20020610
  2. SEROQUEL [Suspect]
     Indication: HALLUCINATION
     Dosage: 50 TO 300 MG
     Route: 048
     Dates: start: 20020610
  3. SEROQUEL [Suspect]
     Indication: DEPRESSION
     Dosage: 50 TO 300 MG
     Route: 048
     Dates: start: 20020610
  4. RISPERDAL [Concomitant]
     Dates: start: 20021102, end: 20040123
  5. ABILIFY [Concomitant]
     Dates: start: 20030908

REACTIONS (2)
  - TRANSIENT ISCHAEMIC ATTACK [None]
  - TYPE 2 DIABETES MELLITUS [None]
